FAERS Safety Report 5402649-6 (Version None)
Quarter: 2007Q3

REPORT INFORMATION
  Report Type: 
  Country: None (occurrence: None)
  Receive Date: 20070801
  Receipt Date: 20070330
  Transmission Date: 20080115
  Serious: No
  Sender: FDA-Public Use
  Company Number: A0645415A

PATIENT
  Sex: Female

DRUGS (1)
  1. IMITREX [Suspect]
     Indication: DRUG USE FOR UNKNOWN INDICATION
     Dosage: 50MG UNKNOWN
     Route: 048

REACTIONS (1)
  - FEELING ABNORMAL [None]
